FAERS Safety Report 6920186-4 (Version None)
Quarter: 2010Q3

REPORT INFORMATION
  Report Type: 
  Country: None (occurrence: None)
  Receive Date: 20100806
  Receipt Date: 20100802
  Transmission Date: 20110219
  Serious: Yes (Hospitalization)
  Sender: FDA-Public Use
  Company Number: 2010SP041914

PATIENT
  Age: 74 Year
  Sex: Female

DRUGS (8)
  1. MIRTAZAPINE [Suspect]
     Indication: ORAL PAIN
     Dosage: 30 MG; QD; PO
     Route: 048
     Dates: start: 20100608, end: 20100716
  2. TOLEDOMIN (MILNACIPRAN HYDROCHLORIDE) [Suspect]
     Indication: PRODUCT USED FOR UNKNOWN INDICATION
     Dosage: 100 MG; QD; PO
     Route: 048
     Dates: start: 20100518, end: 20100716
  3. RISPERIDONE [Concomitant]
  4. ETIZOLAM [Concomitant]
  5. RABEPRAZOLE SODIUM [Concomitant]
  6. MAGNESIUM OXIDE [Concomitant]
  7. MOSAPRIDE CITRATE [Concomitant]
  8. BROTIZOLAM [Concomitant]

REACTIONS (2)
  - DYSSTASIA [None]
  - RHABDOMYOLYSIS [None]
